FAERS Safety Report 4675447-9 (Version None)
Quarter: 2005Q2

REPORT INFORMATION
  Report Type: 
  Country: None (occurrence: None)
  Receive Date: 20050527
  Receipt Date: 20050310
  Transmission Date: 20051028
  Serious: Yes (Other)
  Sender: FDA-Public Use
  Company Number: US-BRISTOL-MYERS SQUIBB COMPANY-12893194

PATIENT
  Age: 9 Year
  Sex: Male

DRUGS (3)
  1. ABILIFY [Suspect]
     Dosage: DECREASED TO 5 MG/DAY
  2. CONCERTA [Concomitant]
  3. DEPAKOTE [Concomitant]
     Dates: start: 20050316

REACTIONS (2)
  - LEUKOPENIA [None]
  - NEUTROPENIA [None]
